FAERS Safety Report 6031773-2 (Version None)
Quarter: 2009Q1

REPORT INFORMATION
  Report Type: 
  Country: None (occurrence: None)
  Receive Date: 20090108
  Receipt Date: 20081020
  Transmission Date: 20090719
  Serious: Yes (Death, Hospitalization)
  Sender: FDA-Public Use
  Company Number: US-MERCK-0810USA03527

PATIENT
  Age: 39 Year
  Sex: Male

DRUGS (3)
  1. JANUVIA [Suspect]
     Indication: DIABETES MELLITUS
     Route: 048
     Dates: start: 20080701, end: 20080706
  2. METFORMIN [Concomitant]
     Route: 065
  3. INSULIN [Concomitant]
     Route: 065
     Dates: start: 20080704

REACTIONS (5)
  - ADVERSE EVENT [None]
  - BLOOD GLUCOSE DECREASED [None]
  - COMPLETED SUICIDE [None]
  - DRUG INEFFECTIVE [None]
  - HEADACHE [None]
